FAERS Safety Report 7089786-8 (Version None)
Quarter: 2010Q4

REPORT INFORMATION
  Report Type: 
  Country: None (occurrence: None)
  Receive Date: 20101108
  Receipt Date: 20101026
  Transmission Date: 20110411
  Serious: Yes (Hospitalization, Other)
  Sender: FDA-Public Use
  Company Number: PHHY2010US57834

PATIENT
  Age: 62 Year
  Sex: Female
  Weight: 130 kg

DRUGS (1)
  1. ZOMETA [Suspect]
     Indication: METASTASES TO BONE
     Dosage: 4 MG, EVERY 2-3 MONTHS
     Route: 042

REACTIONS (4)
  - FALL [None]
  - FRACTURE [None]
  - MUSCLE OPERATION [None]
  - NECK PAIN [None]
